FAERS Safety Report 7885257-7 (Version None)
Quarter: 2011Q4

REPORT INFORMATION
  Report Type: 
  Country: None (occurrence: None)
  Receive Date: 20111102
  Receipt Date: 20111024
  Transmission Date: 20120403
  Serious: Yes (Other)
  Sender: FDA-Public Use
  Company Number: BR-ASTRAZENECA-2011SE64725

PATIENT
  Age: 79 Year
  Sex: Male
  Weight: 60.5 kg

DRUGS (4)
  1. ROSUVASTATIN [Suspect]
     Indication: ATHEROSCLEROSIS PROPHYLAXIS
     Route: 048
  2. IRBESARTAN 150 MG [Concomitant]
     Indication: ATHEROSCLEROSIS PROPHYLAXIS
  3. ASPIRIN [Concomitant]
     Indication: ATHEROSCLEROSIS PROPHYLAXIS
  4. IRBESARTAN 150 MG [Concomitant]

REACTIONS (8)
  - BLOOD PRESSURE INCREASED [None]
  - NEPHROSCLEROSIS [None]
  - ARTERIAL INJURY [None]
  - MICROALBUMINURIA [None]
  - BLOOD POTASSIUM INCREASED [None]
  - PROTEINURIA [None]
  - RENAL FAILURE [None]
  - CREATININE RENAL CLEARANCE DECREASED [None]
